FAERS Safety Report 9797772 (Version 2)
Quarter: 2014Q1

REPORT INFORMATION
  Report Type: Spontaneous
  Country: US (occurrence: US)
  Receive Date: 20140106
  Receipt Date: 20140207
  Transmission Date: 20141002
  Serious: No
  Sender: FDA-Public Use
  Company Number: US-009507513-1401USA001107

PATIENT
  Age: 71 Year
  Sex: Female
  Weight: 116.55 kg

DRUGS (4)
  1. JANUVIA [Suspect]
     Indication: DIABETES MELLITUS
     Dosage: 100 MG, QD
     Route: 048
     Dates: start: 20131101
  2. INSULIN [Concomitant]
     Dosage: UNK
  3. POTASSIUM CHLORIDE - USP [Concomitant]
     Dosage: UNK
  4. METFORMIN [Concomitant]
     Dosage: UNK

REACTIONS (1)
  - Blood glucose decreased [Recovering/Resolving]
